FAERS Safety Report 10261850 (Version 2)
Quarter: 2014Q2

REPORT INFORMATION
  Report Type: Report from Study
  Country: US (occurrence: US)
  Receive Date: 20140626
  Receipt Date: 20140627
  Transmission Date: 20141212
  Serious: Yes (Other)
  Sender: FDA-Public Use
  Company Number: US-ABBVIE-14P-163-1249770-00

PATIENT
  Age: 73 Year
  Sex: Male
  Weight: 90.8 kg

DRUGS (4)
  1. HUMIRA [Suspect]
     Indication: RHEUMATOID ARTHRITIS
     Dates: start: 201403, end: 201404
  2. HUMIRA [Suspect]
     Dates: start: 20140609
  3. PREDNISONE [Concomitant]
     Indication: PRODUCT USED FOR UNKNOWN INDICATION
  4. LEFLUNOMIDE [Concomitant]
     Indication: PRODUCT USED FOR UNKNOWN INDICATION

REACTIONS (7)
  - Bladder transitional cell carcinoma [Recovered/Resolved]
  - Neoplasm malignant [Recovered/Resolved]
  - Lung infection [Recovered/Resolved]
  - Cough [Recovered/Resolved]
  - Blood urine present [Recovered/Resolved]
  - Renal disorder [Unknown]
  - Bladder disorder [Recovered/Resolved]
